FAERS Safety Report 5005994-1 (Version None)
Quarter: 2006Q2

REPORT INFORMATION
  Report Type: 
  Country: None (occurrence: None)
  Receive Date: 20060517
  Receipt Date: 20060517
  Transmission Date: 20061013
  Serious: Yes (Hospitalization)
  Sender: FDA-Public Use
  Company Number: None

PATIENT
  Age: 71 Year
  Sex: Male
  Weight: 102.5129 kg

DRUGS (1)
  1. GLYBURIDE [Suspect]
     Indication: HYPERGLYCAEMIA
     Dosage: 5MG   BID PO
     Route: 048
     Dates: start: 20060323, end: 20060323

REACTIONS (7)
  - ASTHENIA [None]
  - BLOOD ALBUMIN DECREASED [None]
  - CONFUSIONAL STATE [None]
  - DECREASED APPETITE [None]
  - HYPERHIDROSIS [None]
  - HYPOGLYCAEMIA [None]
  - VISION BLURRED [None]
